FAERS Safety Report 11936980 (Version 1)
Quarter: 2016Q1

REPORT INFORMATION
  Report Type: Spontaneous
  Country: US (occurrence: US)
  Receive Date: 20160121
  Receipt Date: 20160121
  Transmission Date: 20160526
  Serious: No
  Sender: FDA-Public Use
  Company Number: US-GLAXOSMITHKLINE-US2016GSK007632

PATIENT
  Sex: Female

DRUGS (1)
  1. LAMICTAL [Suspect]
     Active Substance: LAMOTRIGINE
     Indication: AFFECTIVE DISORDER
     Dosage: 100 MG, U

REACTIONS (6)
  - Malaise [Unknown]
  - Headache [Unknown]
  - Paranasal sinus discomfort [Unknown]
  - Sinus congestion [Unknown]
  - Bronchitis [Unknown]
  - Sinusitis [Unknown]
